FAERS Safety Report 15612756 (Version 1)
Quarter: 2018Q4

REPORT INFORMATION
  Report Type: Report from Study
  Country: TR (occurrence: TR)
  Receive Date: 20181113
  Receipt Date: 20181113
  Transmission Date: 20190205
  Serious: Yes (Life-Threatening, Hospitalization)
  Sender: FDA-Public Use
  Company Number: TR-MYLANLABS-2018M1085658

PATIENT
  Age: 36 Year
  Sex: Male

DRUGS (4)
  1. FOMEPIZOLE. [Concomitant]
     Active Substance: FOMEPIZOLE
     Indication: PRODUCT USED FOR UNKNOWN INDICATION
     Route: 065
  2. EPINEPHRINE. [Suspect]
     Active Substance: EPINEPHRINE
     Indication: RESUSCITATION
     Dosage: EVERY 3-5 MINUTES WITH SODIUM BICARBONATE; FOLLOWED BY ADDITIONAL 45 MINUTES WITHOUT SODIUM BICAR...
     Route: 042
  3. SODIUM BICARBONATE. [Suspect]
     Active Substance: SODIUM BICARBONATE
     Indication: METABOLIC ACIDOSIS
     Dosage: 1MEQ/KG, 2 TIMES
     Route: 040
  4. SALINE                             /00075401/ [Concomitant]
     Active Substance: SODIUM CHLORIDE
     Indication: PRODUCT USED FOR UNKNOWN INDICATION
     Route: 042

REACTIONS (1)
  - Treatment failure [Unknown]
